FAERS Safety Report 4523409-4 (Version None)
Quarter: 2004Q4

REPORT INFORMATION
  Report Type: 
  Country: None (occurrence: None)
  Receive Date: 20041209
  Receipt Date: 20041209
  Transmission Date: 20050328
  Serious: Yes (Hospitalization)
  Sender: FDA-Public Use
  Company Number: None

PATIENT
  Sex: Female

DRUGS (9)
  1. TAXOL [Suspect]
     Indication: BREAST CANCER
     Dosage: TAXOL 80MG/M2 IV Q WK
     Route: 042
     Dates: start: 20040831, end: 20041202
  2. CARBOPLATIN [Suspect]
     Indication: BREAST CANCER
     Dosage: CARBO AUC 6 IV Q 4 WKS
     Route: 042
     Dates: start: 20040831
  3. CARBOPLATIN [Suspect]
     Indication: BREAST CANCER
     Dosage: CARBO AUC 6 IV Q 4 WKS
     Route: 042
     Dates: start: 20040928
  4. CARBOPLATIN [Suspect]
     Indication: BREAST CANCER
     Dosage: CARBO AUC 6 IV Q 4 WKS
     Route: 042
     Dates: start: 20041028
  5. CARBOPLATIN [Suspect]
     Indication: BREAST CANCER
     Dosage: CARBO AUC 6 IV Q 4 WKS
     Route: 042
     Dates: start: 20041202
  6. HERCEPTIN [Suspect]
     Dosage: 2 MG/KG IV QWK
     Route: 042
     Dates: start: 20040831
  7. HERCEPTIN [Suspect]
     Dosage: 2 MG/KG IV QWK
     Route: 042
     Dates: start: 20041202
  8. LOPRESSOR [Concomitant]
  9. DIOVAN [Concomitant]

REACTIONS (3)
  - LOSS OF CONSCIOUSNESS [None]
  - SYNCOPE [None]
  - VOMITING [None]
